FAERS Safety Report 10783673 (Version 1)
Quarter: 2015Q1

REPORT INFORMATION
  Report Type: Spontaneous
  Country: US (occurrence: US)
  Receive Date: 20150210
  Receipt Date: 20150210
  Transmission Date: 20150721
  Serious: No
  Sender: FDA-Public Use
  Company Number: US-ENDO PHARMACEUTICALS INC.-OXYS20140001

PATIENT
  Age: 9 Month
  Sex: Male
  Weight: 7.72 kg

DRUGS (1)
  1. OXYBUTYNIN CHLORIDE SYRUP [Suspect]
     Active Substance: OXYBUTYNIN CHLORIDE
     Indication: BLADDER SPASM
     Route: 048
     Dates: start: 20140508, end: 20140510

REACTIONS (8)
  - Drug prescribing error [Recovered/Resolved]
  - Erythema [Recovered/Resolved]
  - Constipation [Recovered/Resolved]
  - Incorrect dose administered [Recovered/Resolved]
  - Body temperature fluctuation [Recovered/Resolved]
  - Anhidrosis [Recovered/Resolved]
  - Irritability [Recovered/Resolved]
  - Overdose [Recovered/Resolved]

NARRATIVE: CASE EVENT DATE: 20140508
